FAERS Safety Report 7836605-5 (Version None)
Quarter: 2011Q4

REPORT INFORMATION
  Report Type: 
  Country: None (occurrence: None)
  Receive Date: 20111024
  Receipt Date: 20110628
  Transmission Date: 20120403
  Serious: No
  Sender: FDA-Public Use
  Company Number: US-ABBOTT-11P-163-0835787-00

PATIENT
  Sex: Female
  Weight: 102.15 kg

DRUGS (4)
  1. LUPRON DEPOT [Suspect]
     Indication: MENORRHAGIA
     Dates: start: 20110610
  2. LUPRON DEPOT [Suspect]
     Indication: DYSMENORRHOEA
  3. ZOLPIDEM [Concomitant]
     Indication: INSOMNIA
     Dates: start: 20110601
  4. ANTACID [Concomitant]
     Indication: DYSPEPSIA

REACTIONS (4)
  - OEDEMA PERIPHERAL [None]
  - THROMBOSIS [None]
  - PAIN IN EXTREMITY [None]
  - SKIN DISCOLOURATION [None]
